FAERS Safety Report 21632828 (Version 1)
Quarter: 2022Q4

REPORT INFORMATION
  Report Type: Spontaneous
  Country: CA (occurrence: CA)
  Receive Date: 20221123
  Receipt Date: 20221123
  Transmission Date: 20230112
  Serious: Yes (Other)
  Sender: FDA-Public Use
  Company Number: CA-ELI_LILLY_AND_COMPANY-CA202211008375

PATIENT
  Age: 66 Year
  Sex: Female
  Weight: 54.422 kg

DRUGS (1)
  1. EMGALITY [Suspect]
     Active Substance: GALCANEZUMAB-GNLM
     Indication: Migraine prophylaxis
     Dosage: 120 MG, MONTHLY (1/M)
     Route: 058

REACTIONS (4)
  - Atrial fibrillation [Unknown]
  - Fatigue [Unknown]
  - Palpitations [Unknown]
  - Tremor [Unknown]
